FAERS Safety Report 7692755-8 (Version None)
Quarter: 2011Q3

REPORT INFORMATION
  Report Type: 
  Country: None (occurrence: None)
  Receive Date: 20110819
  Receipt Date: 20110810
  Transmission Date: 20111222
  Serious: Yes (Hospitalization, Other)
  Sender: FDA-Public Use
  Company Number: US-JNJFOC-20110807137

PATIENT
  Sex: Female
  Weight: 56.7 kg

DRUGS (9)
  1. TOPROL-XL [Suspect]
     Indication: CORONARY ARTERY DISEASE
     Route: 048
     Dates: start: 20100101
  2. SYNTHROID [Concomitant]
     Indication: HYPOTHYROIDISM
     Route: 048
     Dates: start: 20080101
  3. WELCHOL [Concomitant]
     Indication: PROPHYLAXIS
     Route: 048
     Dates: start: 20100101, end: 20100101
  4. XANAX [Concomitant]
     Indication: ESSENTIAL TREMOR
     Route: 048
  5. FENTANYL [Suspect]
     Indication: INTERVERTEBRAL DISC PROTRUSION
     Route: 062
     Dates: start: 20100101
  6. PROTONIX [Concomitant]
     Indication: GASTROOESOPHAGEAL REFLUX DISEASE
     Route: 048
  7. ASPIRIN [Concomitant]
     Indication: ANTICOAGULANT THERAPY
     Dosage: ONCE DAILY
     Route: 048
     Dates: start: 20100101, end: 20100101
  8. TOPROL-XL [Suspect]
     Route: 048
     Dates: start: 20100101, end: 20100101
  9. FLEXERIL [Concomitant]
     Indication: FIBROMYALGIA
     Route: 048

REACTIONS (4)
  - VERTIGO [None]
  - ARTERIOSCLEROSIS CORONARY ARTERY [None]
  - ARTERIAL SPASM [None]
  - DRUG INEFFECTIVE [None]
